FAERS Safety Report 6790567-0 (Version None)
Quarter: 2010Q2

REPORT INFORMATION
  Report Type: 
  Country: None (occurrence: None)
  Receive Date: 20100624
  Receipt Date: 20100603
  Transmission Date: 20101027
  Serious: Yes (Other)
  Sender: FDA-Public Use
  Company Number: FR-AMGEN-QUU417095

PATIENT
  Age: 75 Year
  Sex: Female

DRUGS (8)
  1. ENBREL [Suspect]
     Indication: PSORIATIC ARTHROPATHY
     Route: 058
     Dates: start: 20100206, end: 20100301
  2. NEXIUM [Concomitant]
  3. METHOTREXATE [Concomitant]
  4. LORAZEPAM [Concomitant]
  5. BI-PROFENID [Concomitant]
  6. SPECIAFOLDINE [Concomitant]
  7. RIFINAH [Concomitant]
     Indication: ANTIBIOTIC PROPHYLAXIS
     Dosage: UNKNOWN
     Route: 048
     Dates: start: 20091201
  8. PAROXETINE [Concomitant]

REACTIONS (2)
  - DEMYELINATING POLYNEUROPATHY [None]
  - VITAMIN B6 DECREASED [None]
